FAERS Safety Report 21991408 (Version 2)
Quarter: 2023Q1

REPORT INFORMATION
  Report Type: Report from Study
  Country: US (occurrence: US)
  Receive Date: 20230214
  Receipt Date: 20230324
  Transmission Date: 20230418
  Serious: Yes (Other)
  Sender: FDA-Public Use
  Company Number: US-002147023-NVSC2023US031538

PATIENT
  Age: 64 Year
  Sex: Female

DRUGS (2)
  1. ENTRESTO [Suspect]
     Active Substance: SACUBITRIL\VALSARTAN
     Indication: Cardiac failure
     Dosage: 1 DOSAGE FORM, BID
     Route: 048
     Dates: start: 20230104
  2. ENTRESTO [Suspect]
     Active Substance: SACUBITRIL\VALSARTAN
     Dosage: 1 DOSAGE FORM, BID
     Route: 048

REACTIONS (8)
  - Rheumatoid arthritis [Unknown]
  - Fine motor skill dysfunction [Not Recovered/Not Resolved]
  - Pain in extremity [Unknown]
  - Arthralgia [Recovering/Resolving]
  - Tendon rupture [Recovering/Resolving]
  - Peripheral swelling [Recovered/Resolved]
  - Limb injury [Recovering/Resolving]
  - Asthenia [Unknown]

NARRATIVE: CASE EVENT DATE: 20230101
